FAERS Safety Report 9676421 (Version 1)
Quarter: 2013Q4

REPORT INFORMATION
  Report Type: Spontaneous
  Country: TW (occurrence: TW)
  Receive Date: 20131107
  Receipt Date: 20131107
  Transmission Date: 20140711
  Serious: Yes (Life-Threatening, Other)
  Sender: FDA-Public Use
  Company Number: TW-ROXANE LABORATORIES, INC.-2013-RO-01789RO

PATIENT
  Age: 1 Year
  Sex: Female
  Weight: 12 kg

DRUGS (6)
  1. CYCLOPHOSPHAMIDE TABLETS USP [Suspect]
     Indication: MEDULLOBLASTOMA
  2. CALCIUM GLUCONATE [Suspect]
     Indication: HYPOCALCAEMIA
  3. CISPLATIN [Suspect]
     Indication: MEDULLOBLASTOMA
  4. CALCIUM GLUCONATE [Suspect]
     Indication: HYPOCALCAEMIA
  5. HEPARIN [Suspect]
     Indication: ANTICOAGULANT THERAPY
  6. CITRATE [Suspect]
     Indication: ANTICOAGULANT THERAPY

REACTIONS (5)
  - Septic shock [Unknown]
  - Febrile neutropenia [Unknown]
  - Coagulopathy [Unknown]
  - Wound infection [Unknown]
  - Activated partial thromboplastin time prolonged [Unknown]
